FAERS Safety Report 8420257-X (Version None)
Quarter: 2012Q2

REPORT INFORMATION
  Report Type: 
  Country: None (occurrence: None)
  Receive Date: 20120607
  Receipt Date: 20120329
  Transmission Date: 20120825
  Serious: Yes (Life-Threatening, Hospitalization, Other)
  Sender: FDA-Public Use
  Company Number: NO-PFIZER INC-2012080357

PATIENT
  Age: 14 Year
  Sex: Male
  Weight: 75 kg

DRUGS (6)
  1. PREDNISOLONE SUCCINATE [Concomitant]
     Indication: PROPHYLAXIS
     Dosage: 20 MG, UNK
     Route: 065
  2. THALIDOMIDE [Suspect]
     Indication: MEDULLOBLASTOMA
     Dosage: 200 MG, 1X/DAY
     Route: 048
  3. CYTARABINE [Suspect]
     Dosage: 50 MG, CYCLIC, EVERY OTHER MONTH
     Route: 037
  4. ETOPOSIDE [Suspect]
     Indication: MEDULLOBLASTOMA
     Dosage: 100 MG, 1X/DAY
     Route: 048
  5. CYTARABINE [Suspect]
     Indication: MEDULLOBLASTOMA
     Dosage: 50 MG, CYCLIC, EVERY OTHER WEEK THEN MONTHLY
     Route: 037
  6. CELECOXIB [Suspect]
     Indication: MEDULLOBLASTOMA
     Dosage: 400 MG, 2X/DAY

REACTIONS (6)
  - SINUSITIS [None]
  - LISTLESS [None]
  - FEBRILE NEUTROPENIA [None]
  - DECREASED APPETITE [None]
  - MUCOSAL INFLAMMATION [None]
  - FATIGUE [None]
